FAERS Safety Report 23720642 (Version 5)
Quarter: 2025Q4

REPORT INFORMATION
  Report Type: Report from Study
  Country: CA (occurrence: CA)
  Receive Date: 20240409
  Receipt Date: 20251023
  Transmission Date: 20260117
  Serious: Yes (Hospitalization, Other)
  Sender: NOVARTIS
  Company Number: CA-002147023-NVSC2021CA090230

PATIENT
  Age: 56 Year
  Sex: Female

DRUGS (5)
  1. MAYZENT [Suspect]
     Active Substance: SIPONIMOD
     Indication: Secondary progressive multiple sclerosis
     Dosage: 2 MG/KG, QD
     Route: 048
     Dates: start: 20210416
  2. MAYZENT [Suspect]
     Active Substance: SIPONIMOD
     Dosage: 1 MG, QD (DOSE REDUCED)
     Route: 048
  3. MAYZENT [Suspect]
     Active Substance: SIPONIMOD
     Dosage: 2 MG, QD
     Route: 048
  4. MAYZENT [Suspect]
     Active Substance: SIPONIMOD
     Dosage: 1 MG, QOD
     Route: 048
  5. MAYZENT [Suspect]
     Active Substance: SIPONIMOD
     Dosage: 1 MG, BID
     Route: 048

REACTIONS (7)
  - Lower limb fracture [Unknown]
  - Skin cancer [Unknown]
  - Lymphocyte count decreased [Unknown]
  - Gait disturbance [Unknown]
  - Fatigue [Unknown]
  - Wrong technique in product usage process [Unknown]
  - Pollakiuria [Unknown]

NARRATIVE: CASE EVENT DATE: 20210419
